FAERS Safety Report 24178247 (Version 2)
Quarter: 2024Q3

REPORT INFORMATION
  Report Type: Spontaneous
  Country: IN (occurrence: IN)
  Receive Date: 20240806
  Receipt Date: 20240911
  Transmission Date: 20241016
  Serious: Yes (Other)
  Sender: ROCHE
  Company Number: IN-002147023-NVSC2024IN155557

PATIENT
  Age: 78 Year
  Sex: Female

DRUGS (1)
  1. RANIBIZUMAB [Suspect]
     Active Substance: RANIBIZUMAB
     Indication: Neovascular age-related macular degeneration
     Dosage: UNK
     Route: 050
     Dates: start: 20240306

REACTIONS (3)
  - Corneal dystrophy [Unknown]
  - Subretinal fluid [Unknown]
  - Retinal drusen [Unknown]

NARRATIVE: CASE EVENT DATE: 20240316
